FAERS Safety Report 9568017 (Version 1)
Quarter: 2013Q3

REPORT INFORMATION
  Report Type: Spontaneous
  Country: US (occurrence: US)
  Receive Date: 20130930
  Receipt Date: 20130930
  Transmission Date: 20140515
  Serious: No
  Sender: FDA-Public Use
  Company Number: US-AMGEN-USASP2013055905

PATIENT
  Age: 40 Year
  Sex: Male
  Weight: 90.7 kg

DRUGS (5)
  1. ENBREL [Suspect]
     Indication: PRODUCT USED FOR UNKNOWN INDICATION
     Dosage: 50 MG, 2 TIMES/WK
     Route: 058
  2. VYVANSE [Concomitant]
     Dosage: 20 MG, UNK
  3. TRICOR                             /00090101/ [Concomitant]
     Dosage: 48 MG, UNK
  4. CITALOPRAM [Concomitant]
     Dosage: 10 MG, UNK
  5. DESOXIMETASONE [Concomitant]
     Dosage: 0.25 %, UNK

REACTIONS (2)
  - Psoriasis [Unknown]
  - Injection site pain [Unknown]
